FAERS Safety Report 17969396 (Version 1)
Quarter: 2020Q3

REPORT INFORMATION
  Report Type: Spontaneous
  Country: IE (occurrence: IE)
  Receive Date: 20200701
  Receipt Date: 20200701
  Transmission Date: 20201103
  Serious: Yes (Other)
  Sender: FDA-Public Use
  Company Number: IE-MYLANLABS-2020M1059228

PATIENT
  Age: 38 Year
  Sex: Female

DRUGS (5)
  1. FENTANYL. [Suspect]
     Active Substance: FENTANYL
     Indication: EPIDURAL ANALGESIA
     Dosage: 100 MICROGRAM
     Route: 065
  2. LEVOBUPIVACAINE [Suspect]
     Active Substance: LEVOBUPIVACAINE
     Dosage: A LOADING DOSE OF 10 ML 0.25 PERCENT LEVOBUPIVACAINE
     Route: 065
  3. LEVOBUPIVACAINE [Suspect]
     Active Substance: LEVOBUPIVACAINE
     Indication: PRODUCT USED FOR UNKNOWN INDICATION
     Dosage: CONTINUOUS INFUSION OF 0.1 PERCENT LEVO?BUPIVACAINE WITH 2 MG/ML.
     Route: 065
  4. FENTANYL. [Suspect]
     Active Substance: FENTANYL
     Dosage: 0.1% LEVO?BUPIVACAINE WITH 2 MG/ML FENTANYL WITH ADDITIONAL PATIENT?CONTROLLED EPIDURAL ANALGESIA BO
     Route: 065
  5. LEVOBUPIVACAINE [Suspect]
     Active Substance: LEVOBUPIVACAINE
     Indication: EPIDURAL ANALGESIA
     Dosage: A TEST DOSE OF 3 ML 0.25 PERCENT
     Route: 065

REACTIONS (5)
  - Deafness neurosensory [Recovering/Resolving]
  - Vomiting [Recovered/Resolved]
  - Tinnitus [Recovering/Resolving]
  - Auditory disorder [Recovered/Resolved]
  - Post lumbar puncture syndrome [Recovered/Resolved]
